FAERS Safety Report 8068931-1 (Version None)
Quarter: 2012Q1

REPORT INFORMATION
  Report Type: 
  Country: None (occurrence: None)
  Receive Date: 20120118
  Receipt Date: 20120105
  Transmission Date: 20120608
  Serious: Yes (Life-Threatening, Hospitalization)
  Sender: FDA-Public Use
  Company Number: 1000027054

PATIENT
  Age: 94 Year
  Sex: Female
  Weight: 45 kg

DRUGS (8)
  1. PARACETAMOL (PARACETAMOL) (TABLETS) (PARACETAMOL) [Concomitant]
  2. NITROFURANTOIN (NITROFURANTOIN) (TABLETS) (NTROFURANTOIN) [Concomitant]
  3. TRAZODONE HYDROCHLORIDE [Suspect]
     Indication: DEPRESSION
     Dosage: 50 MG (50 MG,1 IN 1 D),ORAL
     Route: 048
     Dates: end: 20111019
  4. MEMANTINE HYDROCHLORIDE (MEMANTINE HYDROCHLORIDE) (TABLETS) (MEMANTINE [Concomitant]
  5. TRAMADOL HYDROCHLORIDE (TRAMADOL HYDROCHLORIDE) (TABLETS) (TRAMADOL HY [Concomitant]
  6. ESCITALOPRAM OXALATE [Suspect]
     Indication: DEPRESSION
     Dosage: 5 MG (5 MG,1 IN 1 D),ORAL
     Route: 048
     Dates: end: 20111019
  7. FUROSEMIDE (FUROSEMDE) (TABLETS) (FUROSEMIDE) [Concomitant]
  8. LOSARTAN (LOSARTAN) (TABLETS) (LOSARTAN) [Concomitant]

REACTIONS (8)
  - DYSPNOEA [None]
  - ATRIAL FIBRILLATION [None]
  - DRUG INTERACTION [None]
  - HYPOTENSION [None]
  - CHEST PAIN [None]
  - MALAISE [None]
  - ATRIAL FLUTTER [None]
  - ELECTROCARDIOGRAM QT PROLONGED [None]
